FAERS Safety Report 17989631 (Version 1)
Quarter: 2020Q3

REPORT INFORMATION
  Report Type: Spontaneous
  Country: CA (occurrence: CA)
  Receive Date: 20200707
  Receipt Date: 20200707
  Transmission Date: 20201103
  Serious: Yes (Life-Threatening, Hospitalization, Other)
  Sender: FDA-Public Use
  Company Number: CA-TEVA-2020-CA-1798402

PATIENT
  Age: 68 Year
  Sex: Female
  Weight: 77 kg

DRUGS (17)
  1. DOCETAXEL. [Suspect]
     Active Substance: DOCETAXEL
     Indication: BREAST CANCER FEMALE
     Route: 042
  2. CLONAZEPAM. [Concomitant]
     Active Substance: CLONAZEPAM
  3. ZANTAC [Concomitant]
     Active Substance: RANITIDINE HYDROCHLORIDE
  4. OMEGA 3 SELECT [Concomitant]
     Active Substance: FISH OIL
  5. ASPIRIN [ACETYLSALICYLIC ACID] [Concomitant]
     Active Substance: ASPIRIN
  6. CIPRALEX [Concomitant]
     Active Substance: ESCITALOPRAM OXALATE
  7. CYANOCOBALAMIN. [Concomitant]
     Active Substance: CYANOCOBALAMIN
  8. ERGOCALCIFEROL. [Concomitant]
     Active Substance: ERGOCALCIFEROL
  9. MINOCIN [Concomitant]
     Active Substance: MINOCYCLINE HYDROCHLORIDE
  10. NIFEDIPINE. [Concomitant]
     Active Substance: NIFEDIPINE
  11. TRASTUZUMAB. [Suspect]
     Active Substance: TRASTUZUMAB
     Indication: BREAST CANCER FEMALE
     Route: 042
  12. ATACAND [Concomitant]
     Active Substance: CANDESARTAN CILEXETIL
  13. METFORMIN [Concomitant]
     Active Substance: METFORMIN HYDROCHLORIDE
  14. PARIET [Concomitant]
     Active Substance: RABEPRAZOLE SODIUM
  15. VENLAFAXINE HYDROCHLORIDE. [Concomitant]
     Active Substance: VENLAFAXINE HYDROCHLORIDE
  16. ATORVASTATIN [Concomitant]
     Active Substance: ATORVASTATIN
  17. CARBOPLATIN. [Suspect]
     Active Substance: CARBOPLATIN
     Indication: BREAST CANCER FEMALE
     Route: 042

REACTIONS (6)
  - Pyrexia [Unknown]
  - Acute respiratory distress syndrome [Unknown]
  - Barotrauma [Unknown]
  - Dyspnoea [Unknown]
  - Pneumonia [Unknown]
  - Respiratory distress [Unknown]
